FAERS Safety Report 11174957 (Version 2)
Quarter: 2015Q3

REPORT INFORMATION
  Report Type: Spontaneous
  Country: US (occurrence: US)
  Receive Date: 20150609
  Receipt Date: 20150701
  Transmission Date: 20151125
  Serious: No
  Sender: FDA-Public Use
  Company Number: US-PFIZER INC-2015191633

PATIENT
  Sex: Female

DRUGS (2)
  1. ZOLOFT [Suspect]
     Active Substance: SERTRALINE HYDROCHLORIDE
     Dosage: UNK
  2. ZOLOFT [Suspect]
     Active Substance: SERTRALINE HYDROCHLORIDE
     Dosage: 2 DF, UNK

REACTIONS (5)
  - Hypotension [Unknown]
  - Drug hypersensitivity [Unknown]
  - Palpitations [Unknown]
  - Tension headache [Unknown]
  - Feeling abnormal [Unknown]
